FAERS Safety Report 5912254-0 (Version None)
Quarter: 2008Q4

REPORT INFORMATION
  Report Type: 
  Country: None (occurrence: None)
  Receive Date: 20081008
  Receipt Date: 20081003
  Transmission Date: 20090506
  Serious: Yes (Other)
  Sender: FDA-Public Use
  Company Number: B0531912A

PATIENT
  Age: 20 Year
  Sex: Female

DRUGS (8)
  1. PAXIL [Suspect]
     Indication: DEPRESSION
     Dosage: 20MG PER DAY
     Route: 048
     Dates: start: 20080728, end: 20080728
  2. PAXIL [Suspect]
     Dosage: 10MG PER DAY
     Route: 048
     Dates: start: 20080729, end: 20080729
  3. ADETPHOS [Concomitant]
     Route: 048
  4. MERISLON [Concomitant]
     Route: 048
  5. CYANOCOBALAMIN [Concomitant]
     Indication: MENIERE'S DISEASE
     Route: 048
  6. VONTROL [Concomitant]
     Indication: MENIERE'S DISEASE
     Route: 048
  7. CARNACULIN [Concomitant]
     Indication: MENIERE'S DISEASE
     Route: 048
  8. UNKNOWN DRUG [Concomitant]
     Indication: MENIERE'S DISEASE
     Route: 048

REACTIONS (6)
  - BODY TEMPERATURE DECREASED [None]
  - CHILLS [None]
  - HYPOAESTHESIA [None]
  - NAUSEA [None]
  - SEROTONIN SYNDROME [None]
  - TREMOR [None]
